FAERS Safety Report 5474302-4 (Version None)
Quarter: 2007Q4

REPORT INFORMATION
  Report Type: 
  Country: None (occurrence: None)
  Receive Date: 20071002
  Receipt Date: 20070720
  Transmission Date: 20080405
  Serious: No
  Sender: FDA-Public Use
  Company Number: US-ASTRAZENECA-2007UW17761

PATIENT
  Age: 77 Year
  Sex: Female
  Weight: 89.1 kg

DRUGS (8)
  1. ARIMIDEX [Suspect]
     Indication: BREAST CANCER
     Route: 048
     Dates: start: 20050601
  2. OXYGEN [Concomitant]
  3. ASMANEX TWISTHALER [Concomitant]
  4. ANTIHYPERTENSIVE [Concomitant]
  5. ZOLOFT [Concomitant]
  6. CLARITIN-D [Concomitant]
  7. LEVOTHYROXINE SODIUM [Concomitant]
  8. GLUCOVANCE [Concomitant]
     Dosage: 50/500

REACTIONS (4)
  - ARTHRALGIA [None]
  - GAIT DISTURBANCE [None]
  - JOINT SWELLING [None]
  - SOMNOLENCE [None]
